FAERS Safety Report 4292855-9 (Version None)
Quarter: 2004Q1

REPORT INFORMATION
  Report Type: 
  Country: None (occurrence: None)
  Receive Date: 20040210
  Receipt Date: 20040129
  Transmission Date: 20041129
  Serious: Yes (Other)
  Sender: FDA-Public Use
  Company Number: BE-JNJFOC-20040200112

PATIENT
  Age: 71 Year
  Sex: Male
  Weight: 50.4 kg

DRUGS (5)
  1. PROPULSID [Suspect]
     Indication: IMPAIRED GASTRIC EMPTYING
     Dosage: 10 MG, 4 IN 1 DAY, UNKNOWN
     Dates: start: 20030421, end: 20031003
  2. SOTALOL (SOTALOL) UNKNOWN [Suspect]
     Indication: DRUG USE FOR UNKNOWN INDICATION
     Dosage: 0.5 D0SE (S), ORAL
     Route: 048
  3. DIBERTIL (METOCLOPRAMIDE HYDROCHLORIDE) [Concomitant]
  4. TRAZOLAN (TRAZOLAN HYDROCHLORIDE) [Concomitant]
  5. LAURACALM (LORAZEPAM) [Concomitant]

REACTIONS (6)
  - BLOOD PRESSURE SYSTOLIC INCREASED [None]
  - CHEST PAIN [None]
  - DRUG INTERACTION [None]
  - ELECTROCARDIOGRAM QT PROLONGED [None]
  - MITRAL VALVE PROLAPSE [None]
  - VENTRICULAR EXTRASYSTOLES [None]
